FAERS Safety Report 14480764 (Version 1)
Quarter: 2018Q1

REPORT INFORMATION
  Report Type: Report from Study
  Country: MX (occurrence: MX)
  Receive Date: 20180202
  Receipt Date: 20180202
  Transmission Date: 20180509
  Serious: Yes (Other)
  Sender: FDA-Public Use
  Company Number: PHHY2018MX015647

PATIENT
  Sex: Female

DRUGS (1)
  1. CO-DIOVAN [Suspect]
     Active Substance: HYDROCHLOROTHIAZIDE\VALSARTAN
     Indication: HYPERTENSION
     Dosage: 0.5 DF (HYDROCHLOROTHIAZIDE 12.5 MG, VALSARTAN 80 MG), Q12H
     Route: 048

REACTIONS (6)
  - Asthenia [Recovered/Resolved]
  - Wrong technique in product usage process [Not Recovered/Not Resolved]
  - Haemorrhage [Unknown]
  - Inappropriate schedule of drug administration [Not Recovered/Not Resolved]
  - Malaise [Recovered/Resolved]
  - Drug prescribing error [Not Recovered/Not Resolved]
